FAERS Safety Report 11139870 (Version 1)
Quarter: 2015Q2

REPORT INFORMATION
  Report Type: Spontaneous
  Country: US (occurrence: US)
  Receive Date: 20150527
  Receipt Date: 20150527
  Transmission Date: 20150821
  Serious: No
  Sender: FDA-Public Use
  Company Number: US-PFIZER INC-2015167783

PATIENT
  Age: 62 Year
  Sex: Female

DRUGS (20)
  1. LYRICA [Suspect]
     Active Substance: PREGABALIN
     Dosage: 75 MG, AT 2 IN THE MORNING (AM), 3 AT BED TIME (HS)
  2. IMITREX [Concomitant]
     Active Substance: SUMATRIPTAN\SUMATRIPTAN SUCCINATE
     Indication: HEADACHE
     Dosage: 100 MG, 2X/DAY, 1/2 TO 1 TABLET
     Route: 048
     Dates: start: 20140304
  3. LYRICA [Suspect]
     Active Substance: PREGABALIN
     Indication: PAIN
     Dosage: 150 MG, 3X/DAY
     Dates: start: 20141021
  4. OMEPRAZOLE DR [Concomitant]
     Active Substance: OMEPRAZOLE
     Dosage: 20 MG, 2X/DAY
     Route: 048
     Dates: start: 20140304
  5. AZELASTINE HCL [Concomitant]
     Active Substance: AZELASTINE HYDROCHLORIDE
     Indication: HYPERSENSITIVITY
     Dosage: 2 PUFFS TWO TIMES DAILY, AS NEEDED
     Dates: start: 20140304
  6. FLUTICASONE PROPIONATE. [Concomitant]
     Active Substance: FLUTICASONE PROPIONATE
     Dosage: 50 ?G, (2 (TWO) PUFF(S) (NASAL) EACH NOSTRIL DAILY FOR 90 DAYS)
     Route: 045
     Dates: start: 20140304
  7. NORCO [Concomitant]
     Active Substance: ACETAMINOPHEN\HYDROCODONE BITARTRATE
     Dosage: (HYDROCODONE BITARTRATE-10MG , PARACETAMOL-325MG) 1-2 TABLET EVERY FOUR HOURS, AS NEEDED NTE 4/DAY
     Route: 048
     Dates: start: 20150115
  8. NADOLOL. [Concomitant]
     Active Substance: NADOLOL
     Dosage: 20 MG, DAILY
     Route: 048
     Dates: start: 20150203
  9. TYLENOL ARTHRITIS PAIN [Concomitant]
     Active Substance: ACETAMINOPHEN
     Dosage: 650 MG, (2)
     Route: 048
  10. BUPROPION HCL ER [Concomitant]
     Active Substance: BUPROPION HYDROCHLORIDE
     Dosage: 150 MG, DAILY, 3 TABLET
     Route: 048
     Dates: start: 20150108
  11. VITAMIN B12 [Concomitant]
     Active Substance: CYANOCOBALAMIN
     Dosage: 2500 ?G, DAILY
     Route: 060
     Dates: start: 20131202
  12. FERGON [Concomitant]
     Active Substance: FERROUS GLUCONATE
     Dosage: 240 MG, 2X/DAY, TWO TABLETS DAILY
     Route: 048
     Dates: start: 20141223
  13. OXYBUTYNIN CHLORIDE ER 24HR [Concomitant]
     Indication: INCONTINENCE
     Dosage: 15 MG, DAILY, 1-2 TABLET
     Route: 048
     Dates: start: 20140304
  14. DIFLUCAN [Suspect]
     Active Substance: FLUCONAZOLE
     Dosage: 150 MG, 3XWEEKLY AS NEEDED
     Route: 048
     Dates: start: 20140630
  15. ESTRADIOL. [Concomitant]
     Active Substance: ESTRADIOL
     Dosage: 2 MG, DAILY
     Route: 048
     Dates: start: 20140829
  16. ANUSOL-HC [Concomitant]
     Indication: HAEMORRHOIDS
     Dosage: 25 MG, 1X/DAY
     Route: 054
     Dates: start: 20140311
  17. ZOFRAN [Concomitant]
     Active Substance: ONDANSETRON HYDROCHLORIDE
     Dosage: UNK
     Dates: start: 20140304
  18. IBUPROFEN. [Concomitant]
     Active Substance: IBUPROFEN
     Dosage: 800 MG, 3X/DAY
     Route: 048
     Dates: start: 20141211
  19. SIMVASTATIN. [Concomitant]
     Active Substance: SIMVASTATIN
     Dosage: 5 MG, 1X/DAY, AT BEDTIME
     Route: 048
     Dates: start: 20150203
  20. ALPRAZOLAM. [Concomitant]
     Active Substance: ALPRAZOLAM
     Dosage: 0.5 MG, 3X/DAY
     Dates: start: 20140904

REACTIONS (2)
  - Constipation [Unknown]
  - Dyspnoea [Unknown]
